FAERS Safety Report 5427466-2 (Version None)
Quarter: 2007Q3

REPORT INFORMATION
  Report Type: 
  Country: None (occurrence: None)
  Receive Date: 20070824
  Receipt Date: 20070824
  Transmission Date: 20080115
  Serious: Yes (Other)
  Sender: FDA-Public Use
  Company Number: None

PATIENT

DRUGS (2)
  1. LOTENSIN [Suspect]
     Indication: CHEST PAIN
     Dosage: TABLETS 100
     Dates: start: 20060619, end: 20070820
  2. LOTENSIN [Suspect]

REACTIONS (1)
  - WRONG DRUG ADMINISTERED [None]
